FAERS Safety Report 9711164 (Version 2)
Quarter: 2013Q4

REPORT INFORMATION
  Report Type: Spontaneous
  Country: US (occurrence: US)
  Receive Date: 20131126
  Receipt Date: 20131126
  Transmission Date: 20140711
  Serious: No
  Sender: FDA-Public Use
  Company Number: US-BRISTOL-MYERS SQUIBB COMPANY-19181072

PATIENT
  Age: 53 Year
  Sex: Female
  Weight: 131.52 kg

DRUGS (8)
  1. BYETTA [Suspect]
     Indication: DIABETES MELLITUS
     Route: 058
     Dates: start: 20130318
  2. METFORMIN [Concomitant]
  3. GLIMEPIRIDE [Concomitant]
  4. HYDROCHLOROTHIAZIDE [Concomitant]
  5. METOPROLOL [Concomitant]
  6. NEXIUM [Concomitant]
  7. PRILOSEC [Concomitant]
  8. ZOLOFT [Concomitant]

REACTIONS (2)
  - Drug dose omission [Unknown]
  - Product quality issue [Unknown]
